FAERS Safety Report 9964112 (Version 1)
Quarter: 2014Q1

REPORT INFORMATION
  Report Type: Spontaneous
  Country: JP (occurrence: JP)
  Receive Date: 20140305
  Receipt Date: 20140305
  Transmission Date: 20141002
  Serious: Yes (Other)
  Sender: FDA-Public Use
  Company Number: JP-JNJFOC-20140217413

PATIENT
  Sex: 0

DRUGS (1)
  1. INFLIXIMAB, RECOMBINANT [Suspect]
     Indication: BEHCET^S SYNDROME
     Dosage: DOSE FREQUENCY: AT 0, 2,??6 WEEK, AND THEREAFTER EVERY 8 WEEKS
     Route: 042

REACTIONS (3)
  - Cytomegalovirus mononucleosis [Unknown]
  - Behcet^s syndrome [Unknown]
  - Infusion related reaction [Unknown]
